FAERS Safety Report 10010142 (Version 2)
Quarter: 2014Q1

REPORT INFORMATION
  Report Type: Spontaneous
  Country: US (occurrence: US)
  Receive Date: 20140312
  Receipt Date: 20140312
  Transmission Date: 20141002
  Serious: No
  Sender: FDA-Public Use
  Company Number: US-INCYTE CORPORATION-2013IN001113

PATIENT
  Sex: Female

DRUGS (3)
  1. JAKAFI [Suspect]
     Indication: MYELOFIBROSIS
     Dosage: 5 MG, BID
     Route: 048
  2. JAKAFI [Suspect]
     Dosage: 5 MG, QD
     Route: 048
  3. ZYCLARA [Concomitant]

REACTIONS (4)
  - Pneumonia [Not Recovered/Not Resolved]
  - Haemoglobin decreased [None]
  - Musculoskeletal pain [None]
  - Swelling [None]
